FAERS Safety Report 11984897 (Version 2)
Quarter: 2016Q2

REPORT INFORMATION
  Report Type: Spontaneous
  Country: US (occurrence: US)
  Receive Date: 20160201
  Receipt Date: 20160420
  Transmission Date: 20160815
  Serious: Yes (Hospitalization, Other)
  Sender: FDA-Public Use
  Company Number: US-PFIZER INC-2016046275

PATIENT
  Age: 52 Year
  Sex: Male
  Weight: 100 kg

DRUGS (4)
  1. DILANTIN [Suspect]
     Active Substance: PHENYTOIN
     Dosage: THREE IN THE MORNING AND THREE IN THE EVENING
  2. KEPPRA [Concomitant]
     Active Substance: LEVETIRACETAM
  3. LAMICTAL [Concomitant]
     Active Substance: LAMOTRIGINE
  4. DILANTIN [Suspect]
     Active Substance: PHENYTOIN
     Dosage: 500MG, ONE HALF CAPSULE TWICE DAILY, 2X/DAY
     Dates: start: 1982

REACTIONS (5)
  - Seizure [Unknown]
  - Aphasia [Recovering/Resolving]
  - Head injury [Unknown]
  - Fall [Unknown]
  - Cognitive disorder [Not Recovered/Not Resolved]

NARRATIVE: CASE EVENT DATE: 2008
